FAERS Safety Report 8435248-2 (Version None)
Quarter: 2012Q2

REPORT INFORMATION
  Report Type: 
  Country: None (occurrence: None)
  Receive Date: 20120614
  Receipt Date: 20120531
  Transmission Date: 20120825
  Serious: Yes (Other)
  Sender: FDA-Public Use
  Company Number: JP-MYLANLABS-2012S1011371

PATIENT
  Age: 14 Year
  Sex: Male

DRUGS (5)
  1. ETOPOSIDE [Suspect]
     Indication: BONE SARCOMA
     Dosage: 84MG
     Route: 065
  2. CISPLATIN [Suspect]
     Indication: BONE SARCOMA
     Dosage: 167MG
     Route: 065
  3. IFOSFAMIDE [Suspect]
     Indication: BONE SARCOMA
     Dosage: 4200MG
     Route: 065
  4. METHOTREXATE [Suspect]
     Indication: BONE SARCOMA
     Dosage: 28MG
     Route: 065
  5. DOXORUBICIN HCL [Suspect]
     Indication: BONE SARCOMA
     Dosage: 42MG
     Route: 065

REACTIONS (4)
  - NAUSEA [None]
  - VOMITING [None]
  - HEARING IMPAIRED [None]
  - OESOPHAGEAL STENOSIS [None]
